FAERS Safety Report 21738509 (Version 1)
Quarter: 2022Q4

REPORT INFORMATION
  Report Type: Spontaneous
  Country: BR (occurrence: BR)
  Receive Date: 20221216
  Receipt Date: 20221216
  Transmission Date: 20230112
  Serious: Yes (Other)
  Sender: FDA-Public Use
  Company Number: BR-BAUSCH-BL-2022-027087

PATIENT
  Age: 72 Year
  Sex: Female

DRUGS (2)
  1. IMIQUIMOD [Suspect]
     Active Substance: IMIQUIMOD
     Indication: Actinic keratosis
     Dosage: IMIQUIMOD WAS PRESCRIBED TWICE A WEEK FOR 16 WEEKS AT THAT TIME, BUT DISCONTINUED IN /FEB/2018
     Route: 061
     Dates: start: 201711, end: 201802
  2. TRETINOIN [Concomitant]
     Active Substance: TRETINOIN
     Indication: Rash erythematous
     Route: 061
     Dates: start: 201703

REACTIONS (1)
  - Pemphigus [Recovered/Resolved]

NARRATIVE: CASE EVENT DATE: 20180201
